FAERS Safety Report 12098078 (Version 3)
Quarter: 2016Q1

REPORT INFORMATION
  Report Type: Report from Study
  Country: DE (occurrence: DE)
  Receive Date: 20160221
  Receipt Date: 20160330
  Transmission Date: 20160526
  Serious: Yes (Death, Other)
  Sender: FDA-Public Use
  Company Number: DE-AMGEN-DEUSL2015036410

PATIENT
  Age: 52 Year
  Sex: Male
  Weight: 90.5 kg

DRUGS (6)
  1. OXALIPLATIN. [Concomitant]
     Active Substance: OXALIPLATIN
     Indication: COLON CANCER
     Dosage: UNK EVERY 14 DAYS
     Route: 042
     Dates: start: 20150304, end: 20150318
  2. VECTIBIX [Suspect]
     Active Substance: PANITUMUMAB
     Dosage: 6 MG/KG, EVERY 14 DAYS
     Route: 042
     Dates: start: 20150318, end: 20150318
  3. CALCIUMFOLINAT [Concomitant]
     Active Substance: LEUCOVORIN CALCIUM
     Indication: COLON CANCER
     Dosage: UNK EVERY 14 DAYS
     Dates: start: 20150304, end: 20150318
  4. FLUOROURACIL. [Concomitant]
     Active Substance: FLUOROURACIL
     Indication: COLON CANCER
     Dosage: UNK EVERY 14 DAYS
     Route: 040
     Dates: start: 20150304, end: 20150318
  5. VECTIBIX [Suspect]
     Active Substance: PANITUMUMAB
     Indication: COLON CANCER
     Dosage: 6 MG/KG, EVERY 14 DAYS
     Route: 042
     Dates: start: 20150304, end: 20150304
  6. FLUOROURACIL. [Concomitant]
     Active Substance: FLUOROURACIL
     Dosage: UNK EVERY 14 DAYS (PERMANENT INFUSION)
     Route: 042

REACTIONS (2)
  - Rash [Not Recovered/Not Resolved]
  - Death [Fatal]

NARRATIVE: CASE EVENT DATE: 20150330
